FAERS Safety Report 21423309 (Version 2)
Quarter: 2022Q4

REPORT INFORMATION
  Report Type: Report from Study
  Country: DE (occurrence: DE)
  Receive Date: 20221007
  Receipt Date: 20221102
  Transmission Date: 20230113
  Serious: Yes (Hospitalization)
  Sender: FDA-Public Use
  Company Number: DE-GLAXOSMITHKLINE-DE2022142671

PATIENT

DRUGS (10)
  1. BELANTAMAB MAFODOTIN [Suspect]
     Active Substance: BELANTAMAB MAFODOTIN
     Indication: Plasma cell myeloma
     Dosage: 2.50 MG/KG, CYC (245 MG)
     Route: 042
     Dates: start: 20210427, end: 20210518
  2. BELANTAMAB MAFODOTIN [Suspect]
     Active Substance: BELANTAMAB MAFODOTIN
     Dosage: 1.9 MG/KG, CYC (178.60MG)
     Route: 042
     Dates: start: 20210921, end: 20220308
  3. BELANTAMAB MAFODOTIN [Suspect]
     Active Substance: BELANTAMAB MAFODOTIN
     Dosage: 1.9 MG/KG, CYC (178.60MG)
     Route: 042
     Dates: start: 20220913, end: 20220913
  4. BORTEZOMIB [Suspect]
     Active Substance: BORTEZOMIB
     Indication: Plasma cell myeloma
     Dosage: 1.3 MG/M2, CYC (2.81 MG)
     Route: 042
     Dates: start: 20210427, end: 20210525
  5. BORTEZOMIB [Suspect]
     Active Substance: BORTEZOMIB
     Dosage: 1 MG/M2, CYC (2.15 MG)
     Route: 042
     Dates: start: 20210608, end: 20210618
  6. BORTEZOMIB [Suspect]
     Active Substance: BORTEZOMIB
     Dosage: 1 MG/M2, CYC (2.14 MG)
     Route: 042
     Dates: start: 20210629, end: 20210702
  7. BORTEZOMIB [Suspect]
     Active Substance: BORTEZOMIB
     Dosage: 0.70 MG/M2, CYC (1.48 MG)
     Route: 042
     Dates: start: 20210921, end: 20210928
  8. DEXAMETHASONE [Suspect]
     Active Substance: DEXAMETHASONE
     Indication: Plasma cell myeloma
     Dosage: 20 MG, CYC
     Dates: start: 20210427, end: 20210508
  9. DEXAMETHASONE [Suspect]
     Active Substance: DEXAMETHASONE
     Dosage: 20 MG, CYC
     Dates: start: 20210518, end: 20210529
  10. DEXAMETHASONE [Suspect]
     Active Substance: DEXAMETHASONE
     Dosage: 20 MG, CYC
     Dates: start: 20210608, end: 20210615

REACTIONS (1)
  - COVID-19 pneumonia [Not Recovered/Not Resolved]

NARRATIVE: CASE EVENT DATE: 20220930
